FAERS Safety Report 13412883 (Version 4)
Quarter: 2023Q2

REPORT INFORMATION
  Report Type: Spontaneous
  Country: US (occurrence: US)
  Receive Date: 20170406
  Receipt Date: 20230621
  Transmission Date: 20230721
  Serious: Yes (Other)
  Sender: FDA-Public Use
  Company Number: US-JNJFOC-20170312414

PATIENT
  Age: 16 Year
  Sex: Male

DRUGS (8)
  1. RISPERDAL [Suspect]
     Active Substance: RISPERIDONE
     Indication: Schizophrenia
     Route: 048
  2. RISPERDAL [Suspect]
     Active Substance: RISPERIDONE
     Indication: Psychotic disorder
     Dosage: VARYING DOSE OF 1 MG, 2 MG AND 3 MG.?THERAPY START DATE: 28/FEB/2013?THERAPY END DATE: 23/FEB/2015
     Route: 048
  3. RISPERDAL CONSTA [Suspect]
     Active Substance: RISPERIDONE
     Indication: Schizophrenia
     Dosage: THERAPY START DATE: 18/SEP/2013?THERAPY END DATE: 23/FEB/2014
     Route: 030
  4. RISPERDAL CONSTA [Suspect]
     Active Substance: RISPERIDONE
     Dosage: THERAPY START DATE: 18/SEP/2013
     Route: 030
  5. RISPERDAL CONSTA [Suspect]
     Active Substance: RISPERIDONE
     Dosage: THERAPY START DATE: 06/JAN/2014
     Route: 030
  6. RISPERDAL CONSTA [Suspect]
     Active Substance: RISPERIDONE
     Dosage: THERAPY START DATE: 26/FEB/2014
     Route: 030
  7. INVEGA [Suspect]
     Active Substance: PALIPERIDONE
     Indication: Product used for unknown indication
     Dosage: THERAPY START DATE: //2012?THERAPY END DATE: //2016
     Route: 048
  8. INVEGA [Suspect]
     Active Substance: PALIPERIDONE
     Dosage: THERAPY START DATE: //2012?THERAPY END DATE: //2018
     Route: 048

REACTIONS (5)
  - Seizure [Unknown]
  - Dystonia [Unknown]
  - Gynaecomastia [Unknown]
  - Emotional distress [Unknown]
  - Treatment noncompliance [Unknown]

NARRATIVE: CASE EVENT DATE: 20100918
